FAERS Safety Report 12047796 (Version 1)
Quarter: 2016Q1

REPORT INFORMATION
  Report Type: Report from Study
  Country: JP (occurrence: JP)
  Receive Date: 20160208
  Receipt Date: 20160208
  Transmission Date: 20160526
  Serious: Yes (Death)
  Sender: FDA-Public Use
  Company Number: JP-B.I. PHARMACEUTICALS,INC./RIDGEFIELD-2015-BI-03742NB

PATIENT
  Age: 75 Year
  Sex: Male
  Weight: 65.1 kg

DRUGS (2)
  1. GILOTRIF [Suspect]
     Active Substance: AFATINIB
     Indication: LUNG ADENOCARCINOMA
     Dosage: 30 MG
     Route: 065
     Dates: start: 20141117, end: 20150201
  2. GILOTRIF [Suspect]
     Active Substance: AFATINIB
     Dosage: 20 MG
     Route: 065
     Dates: start: 20150202, end: 20150323

REACTIONS (5)
  - Malignant neoplasm progression [Fatal]
  - Paronychia [Recovered/Resolved]
  - Decreased appetite [Recovered/Resolved]
  - Diarrhoea [Recovered/Resolved]
  - Rash [Recovered/Resolved]

NARRATIVE: CASE EVENT DATE: 20141123
